FAERS Safety Report 10792204 (Version 1)
Quarter: 2015Q1

REPORT INFORMATION
  Report Type: Spontaneous
  Country: GB (occurrence: None)
  Receive Date: 20150211
  Receipt Date: 20150211
  Transmission Date: 20150721
  Serious: Yes (Life-Threatening, Hospitalization)
  Sender: FDA-Public Use
  Company Number: 2015/002

PATIENT
  Age: 58 Year
  Sex: Male

DRUGS (2)
  1. RAMIPRIL. [Suspect]
     Active Substance: RAMIPRIL
  2. AMLODIPINE [Suspect]
     Active Substance: AMLODIPINE BESYLATE

REACTIONS (8)
  - Overdose [None]
  - Toxicity to various agents [None]
  - Vomiting [None]
  - Coma scale abnormal [None]
  - Acidosis [None]
  - Haemofiltration [None]
  - Hypotension [None]
  - Sedation [None]
